FAERS Safety Report 16832148 (Version 1)
Quarter: 2019Q3

REPORT INFORMATION
  Report Type: Spontaneous
  Country: JP (occurrence: JP)
  Receive Date: 20190920
  Receipt Date: 20190920
  Transmission Date: 20191005
  Serious: Yes (Other)
  Sender: FDA-Public Use
  Company Number: JP-ACTELION-A-CH2019-195696

PATIENT
  Age: 23 Year
  Sex: Male

DRUGS (3)
  1. NITRIC OXIDE. [Concomitant]
     Active Substance: NITRIC OXIDE
  2. EPOPROSTENOL SODIUM. [Suspect]
     Active Substance: EPOPROSTENOL SODIUM
     Indication: PULMONARY ARTERIAL HYPERTENSION
     Route: 042
  3. OXYGEN. [Concomitant]
     Active Substance: OXYGEN
     Dosage: 10 L/MIN

REACTIONS (8)
  - Atelectasis [Unknown]
  - Arterectomy with graft replacement [Unknown]
  - Angina pectoris [Unknown]
  - Cardiac arrest [Unknown]
  - Pulmonary artery dilatation [Recovering/Resolving]
  - Bronchial obstruction [Recovering/Resolving]
  - Lung transplant [Unknown]
  - PO2 decreased [Recovering/Resolving]
